FAERS Safety Report 20934728 (Version 1)
Quarter: 2022Q2

REPORT INFORMATION
  Report Type: Spontaneous
  Country: CN (occurrence: CN)
  Receive Date: 20220608
  Receipt Date: 20220608
  Transmission Date: 20220720
  Serious: Yes (Other)
  Sender: FDA-Public Use
  Company Number: CN-009507513-2206CHN001070

PATIENT
  Age: 34 Year
  Sex: Female
  Weight: 60 kg

DRUGS (5)
  1. CILASTATIN SODIUM\IMIPENEM [Suspect]
     Active Substance: CILASTATIN SODIUM\IMIPENEM
     Indication: Anti-infective therapy
     Dosage: 1 G, 3 TIMES 1 DAY (TID)
     Route: 041
     Dates: start: 20220519, end: 20220524
  2. LINEZOLID [Suspect]
     Active Substance: LINEZOLID
     Indication: Anti-infective therapy
     Dosage: 0.6 G, 2 TIMES 1 DAY (BID)
     Route: 041
     Dates: start: 20220519, end: 20220524
  3. HUMAN IMMUNOGLOBULIN G [Suspect]
     Active Substance: HUMAN IMMUNOGLOBULIN G
     Indication: Immune disorder prophylaxis
     Dosage: 10 G, 1 TIME 1 DAY (QD)
     Route: 041
     Dates: start: 20220520, end: 20220520
  4. HUMAN IMMUNOGLOBULIN G [Suspect]
     Active Substance: HUMAN IMMUNOGLOBULIN G
     Dosage: 10 G, 1 TIME 1 DAY (QD)
     Route: 041
     Dates: start: 20220522, end: 20220522
  5. HUMAN IMMUNOGLOBULIN G [Suspect]
     Active Substance: HUMAN IMMUNOGLOBULIN G
     Dosage: 10 G, 1 TIME 1 DAY (QD)
     Route: 041
     Dates: start: 20220523, end: 20220523

REACTIONS (3)
  - Pyrexia [Recovering/Resolving]
  - Macule [Recovering/Resolving]
  - Drug eruption [Recovering/Resolving]

NARRATIVE: CASE EVENT DATE: 20220524
